FAERS Safety Report 5874099-X (Version None)
Quarter: 2008Q3

REPORT INFORMATION
  Report Type: 
  Country: None (occurrence: None)
  Receive Date: 20080908
  Receipt Date: 20080825
  Transmission Date: 20090109
  Serious: Yes (Congenital Anomaly)
  Sender: FDA-Public Use
  Company Number: GB-ROCHE-393000

PATIENT
  Sex: Female
  Weight: 2.9 kg

DRUGS (1)
  1. CELLCEPT [Suspect]
     Indication: ERYTHEMA MULTIFORME
     Dates: start: 20040301, end: 20040305

REACTIONS (3)
  - COLOBOMA [None]
  - EXTERNAL AUDITORY CANAL ATRESIA [None]
  - IRIS COLOBOMA [None]
